FAERS Safety Report 6403741-X (Version None)
Quarter: 2009Q4

REPORT INFORMATION
  Report Type: 
  Country: None (occurrence: None)
  Receive Date: 20091016
  Receipt Date: 20091005
  Transmission Date: 20100525
  Serious: Yes (Hospitalization)
  Sender: FDA-Public Use
  Company Number: PFIZER INC-2007101279

PATIENT
  Age: 23 Year

DRUGS (8)
  1. MARAVIROC [Suspect]
     Indication: HIV TEST POSITIVE
     Dosage: 150 MG, 2X/DAY
     Route: 048
     Dates: start: 20071201
  2. RALTEGRAVIR [Suspect]
     Indication: HIV INFECTION
     Route: 048
     Dates: start: 20071201
  3. DARUNAVIR [Suspect]
     Route: 048
     Dates: start: 20071201
  4. TENOFOVIR [Concomitant]
     Route: 048
     Dates: start: 20050223, end: 20071201
  5. COTRIM [Concomitant]
     Route: 048
     Dates: start: 20061006
  6. KALETRA [Concomitant]
     Route: 048
     Dates: start: 20050223, end: 20071201
  7. LAMIVUDINE [Concomitant]
     Route: 048
     Dates: start: 19961001, end: 20071201
  8. RITONAVIR [Concomitant]
     Route: 048
     Dates: start: 20071201

REACTIONS (1)
  - DRUG TOXICITY [None]
